FAERS Safety Report 20791980 (Version 5)
Quarter: 2022Q2

REPORT INFORMATION
  Report Type: Report from Study
  Country: BR (occurrence: BR)
  Receive Date: 20220505
  Receipt Date: 20220629
  Transmission Date: 20220721
  Serious: Yes (Other)
  Sender: FDA-Public Use
  Company Number: BR-JNJFOC-20220405509

PATIENT
  Age: 66 Year
  Sex: Female

DRUGS (8)
  1. AMIVANTAMAB [Suspect]
     Active Substance: AMIVANTAMAB
     Indication: Non-small cell lung cancer metastatic
     Route: 042
     Dates: start: 20220118
  2. AMIVANTAMAB [Suspect]
     Active Substance: AMIVANTAMAB
     Indication: EGFR gene mutation
     Route: 042
     Dates: end: 20220412
  3. AMIVANTAMAB [Suspect]
     Active Substance: AMIVANTAMAB
     Route: 042
     Dates: start: 20220426
  4. AMIVANTAMAB [Suspect]
     Active Substance: AMIVANTAMAB
     Route: 042
     Dates: start: 20210928, end: 20220104
  5. AMIVANTAMAB [Suspect]
     Active Substance: AMIVANTAMAB
     Route: 042
     Dates: end: 20220513
  6. MORPHINE [Concomitant]
     Active Substance: MORPHINE
     Indication: Back pain
     Dosage: FOR STRONGER PAIN ^(MID)^
     Route: 048
     Dates: start: 20210830
  7. DIPYRONE [Concomitant]
     Active Substance: DIPYRONE
     Indication: Back pain
     Dosage: IF PAIN ^(MID)^
     Route: 048
     Dates: start: 20210830
  8. FERROUS SULFATE [Concomitant]
     Active Substance: FERROUS SULFATE
     Indication: Anaemia
     Route: 048
     Dates: start: 20210118

REACTIONS (4)
  - Transaminases increased [Not Recovered/Not Resolved]
  - Tachycardia [Recovering/Resolving]
  - Oedema [Not Recovered/Not Resolved]
  - Anaemia [Not Recovered/Not Resolved]

NARRATIVE: CASE EVENT DATE: 20211207
